FAERS Safety Report 6271726-2 (Version None)
Quarter: 2009Q3

REPORT INFORMATION
  Report Type: 
  Country: None (occurrence: None)
  Receive Date: 20090716
  Receipt Date: 20090716
  Transmission Date: 20100115
  Serious: Yes (Life-Threatening, Hospitalization, Disabling)
  Sender: FDA-Public Use
  Company Number: None

PATIENT
  Age: 74 Year
  Sex: Male
  Weight: 85.2762 kg

DRUGS (1)
  1. AMIODARONE HCL [Suspect]
     Dosage: 1 TABLET DAILY MOUTH
     Route: 048
     Dates: start: 20080801, end: 20090601

REACTIONS (2)
  - MYXOEDEMA COMA [None]
  - THYROID FUNCTION TEST ABNORMAL [None]
